FAERS Safety Report 25519142 (Version 1)
Quarter: 2025Q3

REPORT INFORMATION
  Report Type: Report from Study
  Country: US (occurrence: US)
  Receive Date: 20250704
  Receipt Date: 20250704
  Transmission Date: 20251020
  Serious: Yes (Other)
  Sender: NOVARTIS
  Company Number: US-002147023-NVSC2024US069326

PATIENT
  Sex: Female

DRUGS (1)
  1. ENTRESTO [Suspect]
     Active Substance: SACUBITRIL\VALSARTAN
     Indication: Product used for unknown indication
     Route: 065

REACTIONS (8)
  - Myocardial infarction [Unknown]
  - Renal failure [Unknown]
  - Ill-defined disorder [Unknown]
  - Anxiety [Unknown]
  - Malaise [Unknown]
  - Palpitations [Unknown]
  - Stress [Unknown]
  - Off label use [Unknown]
